FAERS Safety Report 7109695-5 (Version None)
Quarter: 2010Q4

REPORT INFORMATION
  Report Type: 
  Country: None (occurrence: None)
  Receive Date: 20101118
  Receipt Date: 20101112
  Transmission Date: 20110411
  Serious: Yes (Hospitalization, Other)
  Sender: FDA-Public Use
  Company Number: NO-PFIZER INC-2008031621

PATIENT
  Age: 9 Year
  Sex: Male

DRUGS (3)
  1. SOMATROPIN [Suspect]
     Indication: SMALL FOR DATES BABY
     Dosage: 0.8 MG, 1X/DAY
     Route: 058
     Dates: start: 20040504, end: 20070624
  2. CONCERTA [Concomitant]
     Indication: ATTENTION DEFICIT/HYPERACTIVITY DISORDER
     Route: 048
  3. MELATONIN [Concomitant]
     Indication: INSOMNIA
     Route: 048

REACTIONS (1)
  - PANCREATITIS [None]
